FAERS Safety Report 7425664-X (Version None)
Quarter: 2011Q2

REPORT INFORMATION
  Report Type: 
  Country: None (occurrence: None)
  Receive Date: 20110420
  Receipt Date: 20110411
  Transmission Date: 20111010
  Serious: Yes (Hospitalization)
  Sender: FDA-Public Use
  Company Number: NL-MEDIMMUNE-MEDI-0013074

PATIENT
  Sex: Male
  Weight: 4.7 kg

DRUGS (2)
  1. SYNAGIS [Suspect]
     Route: 030
     Dates: start: 20110218, end: 20110318
  2. SYNAGIS [Suspect]
     Route: 030
     Dates: start: 20110318

REACTIONS (2)
  - FEEDING DISORDER [None]
  - HYPOPHAGIA [None]
